FAERS Safety Report 9851714 (Version 1)
Quarter: 2014Q1

REPORT INFORMATION
  Report Type: Report from Study
  Country: US (occurrence: US)
  Receive Date: 20140129
  Receipt Date: 20140129
  Transmission Date: 20141002
  Serious: Yes (Death, Other)
  Sender: FDA-Public Use
  Company Number: US-ROCHE-1340352

PATIENT
  Age: 75 Year
  Sex: Male

DRUGS (6)
  1. XELODA [Suspect]
     Indication: COLON CANCER
     Dosage: 2 WEEKS ON AND 1 WEEK OFF
     Route: 065
  2. CHEWABLE ASPIRIN [Concomitant]
     Route: 065
  3. LIPITOR [Concomitant]
     Route: 065
  4. FERGON (UNITED STATES) [Concomitant]
     Route: 065
  5. LISINOPRIL [Concomitant]
     Route: 065
  6. FISH OIL [Concomitant]

REACTIONS (2)
  - Death [Fatal]
  - Cerebrovascular accident [Unknown]
